FAERS Safety Report 16481951 (Version 1)
Quarter: 2019Q2

REPORT INFORMATION
  Report Type: Spontaneous
  Country: FR (occurrence: FR)
  Receive Date: 20190627
  Receipt Date: 20190627
  Transmission Date: 20190711
  Serious: Yes (Death, Hospitalization)
  Sender: FDA-Public Use
  Company Number: FR-ACCORD-135256

PATIENT
  Age: 73 Year
  Sex: Female
  Weight: 59.3 kg

DRUGS (14)
  1. SPASFON [Concomitant]
     Route: 048
  2. TAZOBACTAM/TAZOBACTAM SODIUM [Suspect]
     Active Substance: TAZOBACTAM SODIUM
     Indication: LUNG DISORDER
     Route: 042
     Dates: start: 20190420, end: 20190427
  3. DUODOPA [Concomitant]
     Active Substance: CARBIDOPA\LEVODOPA
     Route: 050
     Dates: start: 20190420
  4. VALIUM [Concomitant]
     Active Substance: DIAZEPAM
     Dosage: 5 MG, SCORED TABLET
     Route: 048
     Dates: start: 20190418
  5. CIFLOX (CIPROFLOXACIN) [Suspect]
     Active Substance: CIPROFLOXACIN
     Indication: LUNG DISORDER
     Dosage: STRENGTH-500 MG;
     Route: 048
     Dates: start: 20190421, end: 20190428
  6. SCOPOLAMINE [Concomitant]
     Active Substance: SCOPOLAMINE
     Route: 003
     Dates: start: 20190420
  7. XANAX [Concomitant]
     Active Substance: ALPRAZOLAM
     Dosage: 0.50 MG, SCORED TABLET
     Route: 048
  8. PHOSPHONEUROS [Concomitant]
     Active Substance: CALCIUM PHOSPHATE, DIBASIC, ANHYDROUS\MAGNESIUM GLYCEROPHOSPHATE\PHOSPHORIC ACID\SODIUM PHOSPHATE, DIBASIC
     Route: 048
  9. ALPRAZOLAM. [Concomitant]
     Active Substance: ALPRAZOLAM
     Route: 048
     Dates: start: 20190418
  10. CARBIDOPA/LEVODOPA [Concomitant]
     Route: 048
  11. MODOPAR [Concomitant]
     Active Substance: BENSERAZIDE HYDROCHLORIDE\LEVODOPA
     Route: 048
  12. CLOZAPINE. [Suspect]
     Active Substance: CLOZAPINE
     Indication: HALLUCINATION
     Route: 048
     Dates: start: 201710
  13. PIPERACILLIN. [Suspect]
     Active Substance: PIPERACILLIN SODIUM
     Indication: LUNG DISORDER
     Route: 042
     Dates: start: 20190420, end: 20190427
  14. DAFALGAN ADULT [Concomitant]
     Dosage: STRENGTH 600 MG
     Route: 054

REACTIONS (3)
  - Anaemia [Fatal]
  - Thrombocytopenia [Recovered/Resolved]
  - Leukopenia [Fatal]

NARRATIVE: CASE EVENT DATE: 20190423
